FAERS Safety Report 8101513-1 (Version None)
Quarter: 2012Q1

REPORT INFORMATION
  Report Type: 
  Country: None (occurrence: None)
  Receive Date: 20120129
  Receipt Date: 20110918
  Transmission Date: 20120608
  Serious: No
  Sender: FDA-Public Use
  Company Number: US-ABBOTT-11P-163-0855687-00

PATIENT
  Age: 42 Year
  Sex: Female

DRUGS (5)
  1. MESALAMINE [Concomitant]
     Indication: CROHN'S DISEASE
  2. PREDNISONE TAB [Concomitant]
     Indication: CROHN'S DISEASE
  3. HUMIRA [Suspect]
     Indication: CROHN'S DISEASE
     Dosage: LOADING DOSE
     Dates: start: 20110915
  4. FOLIC ACID [Concomitant]
     Indication: VITAMIN SUPPLEMENTATION
  5. FERROUS SULFATE TAB [Concomitant]
     Indication: MINERAL SUPPLEMENTATION

REACTIONS (2)
  - DYSPNOEA [None]
  - ABDOMINAL PAIN LOWER [None]
